FAERS Safety Report 23946190 (Version 1)
Quarter: 2024Q2

REPORT INFORMATION
  Report Type: Spontaneous
  Country: CN (occurrence: CN)
  Receive Date: 20240606
  Receipt Date: 20240606
  Transmission Date: 20240715
  Serious: Yes (Other)
  Sender: FDA-Public Use
  Company Number: CN-009507513-2406CHN001174

PATIENT
  Age: 63 Year
  Sex: Male
  Weight: 55 kg

DRUGS (8)
  1. JANUVIA [Suspect]
     Active Substance: SITAGLIPTIN PHOSPHATE
     Indication: Type 2 diabetes mellitus
     Dosage: 0.1 G, QD
     Route: 048
     Dates: start: 20240419, end: 20240505
  2. JANUVIA [Suspect]
     Active Substance: SITAGLIPTIN PHOSPHATE
     Indication: Diabetes mellitus management
  3. CEFEPIME HYDROCHLORIDE [Concomitant]
     Active Substance: CEFEPIME HYDROCHLORIDE
     Indication: Pneumonia
     Dosage: 1 G, Q8H
     Route: 041
     Dates: start: 20240414, end: 20240423
  4. SODIUM CHLORIDE [Concomitant]
     Active Substance: SODIUM CHLORIDE
     Dosage: 100 ML, Q8H
     Dates: start: 20240414
  5. FRUCTOSE\GLYCERIN\SODIUM CHLORIDE [Concomitant]
     Active Substance: FRUCTOSE\GLYCERIN\SODIUM CHLORIDE
     Indication: Intracranial pressure increased
     Dosage: 250 ML, Q12H
     Route: 041
     Dates: start: 20240416, end: 20240424
  6. MANNITOL [Concomitant]
     Active Substance: MANNITOL
     Indication: Intracranial pressure increased
     Dosage: 125 ML, BID
     Route: 041
     Dates: start: 20240418, end: 20240419
  7. MANNITOL [Concomitant]
     Active Substance: MANNITOL
     Dosage: 125 ML, QD
     Route: 041
     Dates: start: 20240419, end: 20240420
  8. HERBALS\DIAMMONIUM GLYCYRRHIZINATE [Concomitant]
     Active Substance: HERBALS\DIAMMONIUM GLYCYRRHIZINATE
     Indication: Transaminases
     Dosage: 150 MILLIGRAM, TID, FORMULATION: ENTERIC-COATED CAPSULES
     Dates: start: 20240418

REACTIONS (1)
  - Hepatitis [Recovered/Resolved]

NARRATIVE: CASE EVENT DATE: 20240422
